FAERS Safety Report 10221730 (Version 2)
Quarter: 2014Q2

REPORT INFORMATION
  Report Type: Report from Study
  Country: US (occurrence: US)
  Receive Date: 20140606
  Receipt Date: 20140626
  Transmission Date: 20141212
  Serious: Yes (Hospitalization)
  Sender: FDA-Public Use
  Company Number: US-MUNDIPHARMA DS AND PHARMACOVIGILANCE-USA-2014-0114472

PATIENT
  Age: 16 Year
  Sex: Male
  Weight: 78 kg

DRUGS (3)
  1. OXY CR TAB [Suspect]
     Indication: PAIN
     Dosage: 50 MG, BID
     Route: 048
     Dates: start: 20140422, end: 20140430
  2. OXY CR TAB [Suspect]
     Dosage: 30 MG, BID
     Route: 048
     Dates: start: 20140430, end: 20140513
  3. OXY CR TAB [Suspect]
     Dosage: 20 MG, BID
     Route: 048
     Dates: start: 20140513, end: 20140519

REACTIONS (1)
  - Febrile neutropenia [Recovered/Resolved]
